FAERS Safety Report 18890907 (Version 2)
Quarter: 2021Q2

REPORT INFORMATION
  Report Type: Spontaneous
  Country: US (occurrence: US)
  Receive Date: 20210215
  Receipt Date: 20210531
  Transmission Date: 20210717
  Serious: Yes (Other)
  Sender: FDA-Public Use
  Company Number: US-DRREDDYS-USA/USA/21/0131759

PATIENT
  Age: 61 Year
  Sex: Male

DRUGS (37)
  1. QUETIAPINE FUMARATE TABLETS [Suspect]
     Active Substance: QUETIAPINE FUMARATE
     Indication: OBSESSIVE-COMPULSIVE DISORDER
  2. QUETIAPINE FUMARATE TABLETS [Suspect]
     Active Substance: QUETIAPINE FUMARATE
     Indication: MAJOR DEPRESSION
  3. HALOPERIDOL. [Suspect]
     Active Substance: HALOPERIDOL
     Indication: SCHIZOPHRENIA
  4. CHLORPROMAZINE. [Suspect]
     Active Substance: CHLORPROMAZINE
     Indication: SCHIZOPHRENIA
  5. CLOZAPINE. [Suspect]
     Active Substance: CLOZAPINE
     Indication: SCHIZOPHRENIA
  6. DOXAZOSIN [Concomitant]
     Active Substance: DOXAZOSIN MESYLATE
     Indication: PRODUCT USED FOR UNKNOWN INDICATION
  7. BETHANECHOL [Concomitant]
     Active Substance: BETHANECHOL
     Indication: PRODUCT USED FOR UNKNOWN INDICATION
  8. LATANOPROST. [Concomitant]
     Active Substance: LATANOPROST
     Indication: PRODUCT USED FOR UNKNOWN INDICATION
  9. RISPERIDONE. [Suspect]
     Active Substance: RISPERIDONE
     Indication: OBSESSIVE-COMPULSIVE DISORDER
  10. QUETIAPINE FUMARATE TABLETS [Suspect]
     Active Substance: QUETIAPINE FUMARATE
     Indication: IMPULSE-CONTROL DISORDER
  11. CHLORPROMAZINE. [Suspect]
     Active Substance: CHLORPROMAZINE
     Indication: MAJOR DEPRESSION
  12. THIORIDAZINE [Suspect]
     Active Substance: THIORIDAZINE
     Indication: SCHIZOPHRENIA
  13. THIORIDAZINE [Suspect]
     Active Substance: THIORIDAZINE
     Indication: OBSESSIVE-COMPULSIVE DISORDER
  14. ACETYLCYSTEINE. [Concomitant]
     Active Substance: ACETYLCYSTEINE
     Indication: PRODUCT USED FOR UNKNOWN INDICATION
  15. HALOPERIDOL. [Suspect]
     Active Substance: HALOPERIDOL
     Indication: IMPULSE-CONTROL DISORDER
  16. HALOPERIDOL. [Suspect]
     Active Substance: HALOPERIDOL
     Indication: OBSESSIVE-COMPULSIVE DISORDER
  17. LISINOPRIL. [Concomitant]
     Active Substance: LISINOPRIL
     Indication: PRODUCT USED FOR UNKNOWN INDICATION
  18. ESCITALOPRAM [Concomitant]
     Active Substance: ESCITALOPRAM OXALATE
     Indication: PRODUCT USED FOR UNKNOWN INDICATION
  19. QUETIAPINE FUMARATE TABLETS [Suspect]
     Active Substance: QUETIAPINE FUMARATE
     Indication: SCHIZOPHRENIA
  20. CHLORPROMAZINE. [Suspect]
     Active Substance: CHLORPROMAZINE
     Indication: OBSESSIVE-COMPULSIVE DISORDER
  21. PINDOLOL. [Concomitant]
     Active Substance: PINDOLOL
     Indication: PRODUCT USED FOR UNKNOWN INDICATION
  22. GLYCOPYRROLATE. [Concomitant]
     Active Substance: GLYCOPYRROLATE
     Indication: PRODUCT USED FOR UNKNOWN INDICATION
  23. RISPERIDONE. [Suspect]
     Active Substance: RISPERIDONE
     Indication: MAJOR DEPRESSION
  24. HALOPERIDOL. [Suspect]
     Active Substance: HALOPERIDOL
     Indication: MAJOR DEPRESSION
  25. CHLORPROMAZINE. [Suspect]
     Active Substance: CHLORPROMAZINE
     Indication: IMPULSE-CONTROL DISORDER
  26. CLOZAPINE. [Suspect]
     Active Substance: CLOZAPINE
     Indication: OBSESSIVE-COMPULSIVE DISORDER
  27. FAMOTIDINE. [Concomitant]
     Active Substance: FAMOTIDINE
     Indication: PRODUCT USED FOR UNKNOWN INDICATION
  28. ATORVASTATIN [Concomitant]
     Active Substance: ATORVASTATIN
     Indication: PRODUCT USED FOR UNKNOWN INDICATION
  29. NALTREXONE [Concomitant]
     Active Substance: NALTREXONE
     Indication: PRODUCT USED FOR UNKNOWN INDICATION
  30. RISPERIDONE. [Suspect]
     Active Substance: RISPERIDONE
     Indication: SCHIZOPHRENIA
  31. RISPERIDONE. [Suspect]
     Active Substance: RISPERIDONE
     Indication: IMPULSE-CONTROL DISORDER
  32. CLOZAPINE. [Suspect]
     Active Substance: CLOZAPINE
     Indication: IMPULSE-CONTROL DISORDER
  33. CLOZAPINE. [Suspect]
     Active Substance: CLOZAPINE
     Indication: MAJOR DEPRESSION
  34. THIORIDAZINE [Suspect]
     Active Substance: THIORIDAZINE
     Indication: MAJOR DEPRESSION
  35. THIORIDAZINE [Suspect]
     Active Substance: THIORIDAZINE
     Indication: IMPULSE-CONTROL DISORDER
  36. LEVOTHYROXINE SODIUM. [Concomitant]
     Active Substance: LEVOTHYROXINE SODIUM
     Indication: PRODUCT USED FOR UNKNOWN INDICATION
  37. MEMANTINE HYDROCHLORIDE. [Concomitant]
     Active Substance: MEMANTINE HYDROCHLORIDE
     Indication: PRODUCT USED FOR UNKNOWN INDICATION

REACTIONS (1)
  - Tardive dyskinesia [Recovering/Resolving]
